FAERS Safety Report 7377955-9 (Version None)
Quarter: 2011Q1

REPORT INFORMATION
  Report Type: 
  Country: None (occurrence: None)
  Receive Date: 20110328
  Receipt Date: 20110323
  Transmission Date: 20110831
  Serious: Yes (Hospitalization, Other)
  Sender: FDA-Public Use
  Company Number: SE-PFIZER INC-2011064136

PATIENT
  Age: 80 Year
  Sex: Male

DRUGS (15)
  1. BEHEPAN [Concomitant]
     Dosage: UNK
  2. CALCICHEW-D3 [Concomitant]
     Dosage: UNK
  3. BRICANYL [Concomitant]
     Dosage: UNK
  4. ACETAMINOPHEN [Concomitant]
     Dosage: UNK
  5. FOLACIN [Concomitant]
     Dosage: UNK
  6. OMEPRAZOLE [Concomitant]
     Dosage: UNK
  7. BISOPROLOL [Concomitant]
     Dosage: UNK
  8. VENLAFAXINE [Concomitant]
     Dosage: UNK
  9. QUESTRAN [Concomitant]
     Dosage: UNK
  10. MIRTAZAPINE [Concomitant]
     Dosage: UNK
  11. SALAZOPYRIN [Suspect]
     Indication: RHEUMATIC HEART DISEASE
  12. PRIMPERAN TAB [Concomitant]
     Dosage: UNK
  13. KALEORID [Concomitant]
     Dosage: UNK
  14. SALAZOPYRIN [Suspect]
     Indication: CROHN'S DISEASE
     Dosage: UNK
     Dates: end: 20101210
  15. TROMBYL [Concomitant]
     Dosage: UNK

REACTIONS (4)
  - LACUNAR INFARCTION [None]
  - AGRANULOCYTOSIS [None]
  - PERSONALITY CHANGE [None]
  - DIARRHOEA [None]
